FAERS Safety Report 4433430-2 (Version None)
Quarter: 2004Q3

REPORT INFORMATION
  Report Type: 
  Country: None (occurrence: None)
  Receive Date: 20040824
  Receipt Date: 20040811
  Transmission Date: 20050211
  Serious: Yes (Hospitalization, Other)
  Sender: FDA-Public Use
  Company Number: 2004055703

PATIENT
  Age: 63 Year
  Sex: Male

DRUGS (2)
  1. VIAGRA [Suspect]
     Indication: ILL-DEFINED DISORDER
     Dosage: ORAL
     Route: 048
     Dates: start: 20040101, end: 20040704
  2. VALPROATE SODIUM [Concomitant]

REACTIONS (5)
  - APHASIA [None]
  - BURNS SECOND DEGREE [None]
  - DYSPNOEA [None]
  - GRAND MAL CONVULSION [None]
  - THERMAL BURN [None]
